FAERS Safety Report 5362147-5 (Version None)
Quarter: 2007Q2

REPORT INFORMATION
  Report Type: 
  Country: None (occurrence: None)
  Receive Date: 20070530
  Receipt Date: 20070309
  Transmission Date: 20071010
  Serious: No
  Sender: FDA-Public Use
  Company Number: 2007PV031449

PATIENT
  Age: 73 Year
  Sex: Female
  Weight: 78.0187 kg

DRUGS (3)
  1. BYETTA [Suspect]
     Indication: DIABETES MELLITUS NON-INSULIN-DEPENDENT
     Dosage: 10 MCG;BID;SC / 05 MCG;BID;SC
     Route: 058
     Dates: start: 20070201, end: 20070305
  2. BYETTA [Suspect]
     Indication: DIABETES MELLITUS NON-INSULIN-DEPENDENT
     Dosage: 10 MCG;BID;SC / 05 MCG;BID;SC
     Route: 058
     Dates: start: 20070305
  3. ACTOS [Concomitant]

REACTIONS (1)
  - WEIGHT DECREASED [None]
